FAERS Safety Report 24402776 (Version 1)
Quarter: 2024Q4

REPORT INFORMATION
  Report Type: Spontaneous
  Country: FR (occurrence: FR)
  Receive Date: 20241007
  Receipt Date: 20241007
  Transmission Date: 20250115
  Serious: Yes (Other)
  Sender: BRISTOL MYERS SQUIBB
  Company Number: FR-BRISTOL-MYERS SQUIBB COMPANY-2024-152363

PATIENT
  Age: 47 Year
  Sex: Male

DRUGS (1)
  1. ADAGRASIB [Suspect]
     Active Substance: ADAGRASIB
     Indication: Product used for unknown indication
     Dates: start: 20240821, end: 20240916

REACTIONS (3)
  - Skin reaction [Recovering/Resolving]
  - Pain of skin [Recovering/Resolving]
  - Pruritus [Recovering/Resolving]

NARRATIVE: CASE EVENT DATE: 20240916
